FAERS Safety Report 8017663-4 (Version None)
Quarter: 2012Q1

REPORT INFORMATION
  Report Type: 
  Country: None (occurrence: None)
  Receive Date: 20120103
  Receipt Date: 20111220
  Transmission Date: 20120608
  Serious: Yes (Other)
  Sender: FDA-Public Use
  Company Number: US-JNJFOC-20111209081

PATIENT
  Sex: Male
  Weight: 70.31 kg

DRUGS (2)
  1. REMICADE [Suspect]
     Indication: COLITIS ULCERATIVE
     Route: 042
  2. REMICADE [Suspect]
     Route: 042

REACTIONS (10)
  - DISTURBANCE IN ATTENTION [None]
  - DRUG INEFFECTIVE [None]
  - ANXIETY [None]
  - ARTHRITIS [None]
  - LETHARGY [None]
  - CHAPPED LIPS [None]
  - PSORIASIS [None]
  - DEHYDRATION [None]
  - FEELING ABNORMAL [None]
  - WEIGHT FLUCTUATION [None]
